FAERS Safety Report 8509872-2 (Version None)
Quarter: 2012Q3

REPORT INFORMATION
  Report Type: 
  Country: None (occurrence: None)
  Receive Date: 20120713
  Receipt Date: 20120703
  Transmission Date: 20120928
  Serious: No
  Sender: FDA-Public Use
  Company Number: US-ASTRAZENECA-2012SE45265

PATIENT
  Age: 81 Year
  Sex: Male
  Weight: 98.9 kg

DRUGS (2)
  1. PULMICORT FLEXHALER [Suspect]
     Dosage: ONE INHALATION IN MORNING AND AT NIGHT
     Route: 055
  2. PULMICORT FLEXHALER [Suspect]
     Indication: COUGH
     Dosage: TWO INHALATIONS IN MORNING AND AT NIGHT
     Route: 055

REACTIONS (2)
  - INSOMNIA [None]
  - OFF LABEL USE [None]
